FAERS Safety Report 12507958 (Version 1)
Quarter: 2016Q2

REPORT INFORMATION
  Report Type: Report from Study
  Country: BR (occurrence: BR)
  Receive Date: 20160629
  Receipt Date: 20160629
  Transmission Date: 20160815
  Serious: Yes (Death, Hospitalization, Other)
  Sender: FDA-Public Use
  Company Number: PHHY2016BR089108

PATIENT
  Sex: Male
  Weight: 62.5 kg

DRUGS (1)
  1. EXELON PATCH [Suspect]
     Active Substance: RIVASTIGMINE
     Indication: DEMENTIA ALZHEIMER^S TYPE
     Route: 062

REACTIONS (5)
  - Multiple organ dysfunction syndrome [Fatal]
  - Viral infection [Fatal]
  - Bacterial infection [Fatal]
  - Pneumonia [Recovered/Resolved with Sequelae]
  - Weight decreased [Unknown]
